FAERS Safety Report 21491602 (Version 2)
Quarter: 2022Q4

REPORT INFORMATION
  Report Type: Spontaneous
  Country: IT (occurrence: IT)
  Receive Date: 20221021
  Receipt Date: 20221107
  Transmission Date: 20230112
  Serious: Yes (Other)
  Sender: FDA-Public Use
  Company Number: IT-PFIZER INC-PV202200049814

PATIENT
  Age: 72 Year
  Sex: Male

DRUGS (3)
  1. SUNITINIB [Suspect]
     Active Substance: SUNITINIB
     Indication: Liver disorder
     Dosage: 37.5 MG, DAILY
     Route: 065
  2. SUNITINIB [Suspect]
     Active Substance: SUNITINIB
     Indication: Pancreatic neuroendocrine tumour
  3. LANREOTIDE [Concomitant]
     Active Substance: LANREOTIDE
     Indication: Pancreatic neuroendocrine tumour
     Dosage: 1 DOSAGE FORM, Q28D
     Route: 065

REACTIONS (12)
  - Autoimmune hypothyroidism [Recovering/Resolving]
  - Normochromic anaemia [Recovering/Resolving]
  - Normocytic anaemia [Recovering/Resolving]
  - Hypothyroidism [Recovering/Resolving]
  - Periorbital oedema [Recovered/Resolved]
  - Constipation [Recovered/Resolved]
  - Peripheral coldness [Recovered/Resolved]
  - Dry skin [Recovered/Resolved]
  - Weight increased [Recovered/Resolved]
  - Asthenia [Recovered/Resolved]
  - Somnolence [Recovered/Resolved]
  - Fatigue [Recovered/Resolved]
